FAERS Safety Report 4332633-5 (Version None)
Quarter: 2004Q2

REPORT INFORMATION
  Report Type: 
  Country: None (occurrence: None)
  Receive Date: 20040406
  Receipt Date: 20040205
  Transmission Date: 20050107
  Serious: Yes (Death)
  Sender: FDA-Public Use
  Company Number: PHRM2004FR00766

PATIENT
  Age: 65 Year
  Sex: Male
  Weight: 59 kg

DRUGS (11)
  1. NEOSYNEPHRINE 10% (NVO) [Suspect]
     Indication: ANGIOGRAM RETINA
     Dosage: 2 DROPS EVERY 20MN
     Route: 047
     Dates: start: 20040129, end: 20040129
  2. MYDRIATICUM [Suspect]
     Indication: ANGIOGRAM RETINA
     Dosage: 2 DROPS EVERY 20MN
     Route: 047
     Dates: start: 20040129, end: 20040129
  3. TENORDATE [Concomitant]
     Indication: HYPERTENSIVE CARDIOMYOPATHY
     Dosage: 1 DF, QD
     Route: 048
  4. ALDACTAZINE [Concomitant]
     Indication: HYPERTENSIVE CARDIOMYOPATHY
     Dosage: 1 DF, QD
     Route: 048
  5. PREDNISONE [Concomitant]
     Indication: RHEUMATOID ARTHRITIS
     Dosage: 10 MG/DAY
     Route: 048
  6. ARAVA [Concomitant]
     Indication: RHEUMATOID ARTHRITIS
     Dosage: 20 MG/DAY
     Route: 048
  7. FOZITEC [Concomitant]
     Dosage: 5 MG, QD
     Route: 048
  8. MOPRAL [Concomitant]
     Route: 048
  9. VOLTAREN [Concomitant]
  10. FOSAMAX [Concomitant]
     Dosage: 1 DF, QW
     Route: 048
  11. FIXICAL VITAMINE D3 [Concomitant]
     Dosage: 2 DF/DAY
     Route: 048

REACTIONS (5)
  - ATRIAL FIBRILLATION [None]
  - MALAISE [None]
  - MYOCARDIAL INFARCTION [None]
  - SHOCK [None]
  - VENTRICULAR FIBRILLATION [None]
